FAERS Safety Report 12393610 (Version 1)
Quarter: 2016Q2

REPORT INFORMATION
  Report Type: Report from Study
  Country: AR (occurrence: AR)
  Receive Date: 20160523
  Receipt Date: 20160523
  Transmission Date: 20160815
  Serious: Yes (Other)
  Sender: FDA-Public Use
  Company Number: PHHY2016AR069888

PATIENT
  Sex: Male

DRUGS (2)
  1. DIOVAN [Suspect]
     Active Substance: VALSARTAN
     Indication: BLOOD DISORDER
     Dosage: 1 DF, QD
     Route: 065
  2. DIOVAN [Suspect]
     Active Substance: VALSARTAN
     Dosage: 0.5 DF, UNK (SOMETIMES)
     Route: 065

REACTIONS (3)
  - Diabetes mellitus [Recovering/Resolving]
  - Wrong technique in product usage process [Unknown]
  - Blood cholesterol abnormal [Recovering/Resolving]
